FAERS Safety Report 24289752 (Version 1)
Quarter: 2024Q3

REPORT INFORMATION
  Report Type: Spontaneous
  Country: GB (occurrence: GB)
  Receive Date: 20240906
  Receipt Date: 20240906
  Transmission Date: 20241017
  Serious: Yes (Other)
  Sender: ALKEM
  Company Number: None

PATIENT

DRUGS (1)
  1. PREGABALIN [Suspect]
     Active Substance: PREGABALIN
     Indication: Neuralgia
     Dosage: UNK
     Route: 065

REACTIONS (7)
  - Euphoric mood [Unknown]
  - Disturbance in attention [Unknown]
  - Balance disorder [Unknown]
  - Anxiety [Unknown]
  - Pain [Unknown]
  - Drug dependence [Unknown]
  - Intentional product use issue [Unknown]
